FAERS Safety Report 7462121-9 (Version None)
Quarter: 2011Q2

REPORT INFORMATION
  Report Type: 
  Country: None (occurrence: None)
  Receive Date: 20110506
  Receipt Date: 20110428
  Transmission Date: 20111010
  Serious: Yes (Hospitalization)
  Sender: FDA-Public Use
  Company Number: US-B.I. PHARMACEUTICALS,INC./RIDGEFIELD-2011-BP-02461BP

PATIENT
  Sex: Male
  Weight: 76.66 kg

DRUGS (18)
  1. LIPITOR [Concomitant]
     Indication: HYPERLIPIDAEMIA
     Dosage: 20 MG
     Route: 048
     Dates: start: 20021001
  2. CALCIUM [Concomitant]
  3. VEGF TRAP-EYE [Suspect]
     Indication: MACULAR DEGENERATION
     Dosage: INTRAVITREAL; MASKED (VGFT 0.5MG OR 2.0MG OR RANIBIZUMAB 0.5MG)
     Dates: start: 20090709
  4. DOXAZOSIN MESYLATE [Concomitant]
     Indication: HYPERTENSION
     Dosage: 2 MG
     Route: 048
     Dates: start: 20080101
  5. AMLODIPINE BESYLATE [Concomitant]
     Indication: HYPERTENSION
     Dosage: 10 MG
     Route: 048
     Dates: start: 20080301
  6. LISINOPRIL [Concomitant]
     Indication: HYPERTENSION
     Dosage: 40 MG
     Route: 048
     Dates: start: 20021001
  7. VITAMIN C [Concomitant]
  8. PLAVIX [Concomitant]
  9. AGGRENOX [Suspect]
     Indication: ISCHAEMIC CEREBRAL INFARCTION
     Dosage: 25MG/200MG BID
     Route: 048
     Dates: start: 20100208, end: 20110104
  10. VEGF TRAP-EYE [Suspect]
     Dosage: INTRAVITREAL; MASKED (VGFT 0.5MG OR 2.0MG OR RANIBIZUMAB 0.5MG)
     Dates: start: 20090709
  11. FISH OIL [Concomitant]
  12. HYDROCHLOROTHIAZIDE [Concomitant]
     Indication: HYPERTENSION
     Dosage: 25 MG
     Route: 048
     Dates: start: 19980101
  13. METOPROLOL TARTRATE [Concomitant]
     Indication: HYPERTENSION
     Dosage: 200 MG
     Route: 048
     Dates: start: 20070101
  14. GLUCOSAMINE [Concomitant]
  15. CLOBETASOL PROPIONATE [Concomitant]
  16. TOPROL-XL [Concomitant]
     Dosage: 200 MG
  17. VITAMIN D [Concomitant]
  18. ASPIRIN [Concomitant]

REACTIONS (15)
  - SINUS BRADYCARDIA [None]
  - INFARCTION [None]
  - HAEMOGLOBIN DECREASED [None]
  - DEHYDRATION [None]
  - DIARRHOEA [None]
  - HYPERSENSITIVITY [None]
  - BLOOD GLUCOSE INCREASED [None]
  - RASH GENERALISED [None]
  - BLOOD SODIUM DECREASED [None]
  - ERYTHEMA [None]
  - HYPOTENSION [None]
  - OEDEMA PERIPHERAL [None]
  - DRUG HYPERSENSITIVITY [None]
  - OEDEMA [None]
  - RENAL FAILURE ACUTE [None]
